FAERS Safety Report 7354781 (Version 3)
Quarter: 2014Q1

REPORT INFORMATION
  Report Type: Spontaneous
  Country: AU (occurrence: AU)
  Receive Date: 20100414
  Receipt Date: 20140121
  Transmission Date: 20141002
  Serious: No
  Sender: FDA-Public Use
  Company Number: AU-JNJFOC-20100401815

PATIENT
  Sex: Female

DRUGS (5)
  1. DUROGESIC [Suspect]
     Indication: PAIN IN EXTREMITY
     Route: 062
  2. DUROGESIC [Suspect]
     Indication: MUSCULOSKELETAL PAIN
     Route: 062
  3. PANADEINE [Concomitant]
     Indication: PRODUCT USED FOR UNKNOWN INDICATION
     Route: 065
  4. NUROFEN [Concomitant]
     Indication: PRODUCT USED FOR UNKNOWN INDICATION
     Route: 065
  5. UNSPECIFIED CANCER MEDICATION [Concomitant]
     Indication: BREAST CANCER
     Route: 065

REACTIONS (3)
  - Pain [Unknown]
  - Wrong technique in drug usage process [Unknown]
  - Product adhesion issue [Unknown]
